FAERS Safety Report 6371185-5 (Version None)
Quarter: 2009Q3

REPORT INFORMATION
  Report Type: 
  Country: None (occurrence: None)
  Receive Date: 20090923
  Receipt Date: 20070403
  Transmission Date: 20100115
  Serious: Yes (Other)
  Sender: FDA-Public Use
  Company Number: US-ASTRAZENECA-2007UW04107

PATIENT
  Age: 556 Month
  Sex: Female
  Weight: 68 kg

DRUGS (16)
  1. SEROQUEL [Suspect]
     Indication: ANXIETY
     Dosage: 25-100 MG
     Dates: start: 20030701, end: 20060201
  2. SEROQUEL [Suspect]
     Indication: DEPRESSION
     Dosage: 25-100 MG
     Dates: start: 20030701, end: 20060201
  3. SEROQUEL [Suspect]
     Indication: INSOMNIA
     Dosage: 25-100 MG
     Dates: start: 20030701, end: 20060201
  4. SEROQUEL [Suspect]
     Route: 048
     Dates: start: 20030731, end: 20051018
  5. SEROQUEL [Suspect]
     Route: 048
     Dates: start: 20030731, end: 20051018
  6. SEROQUEL [Suspect]
     Route: 048
     Dates: start: 20030731, end: 20051018
  7. BENZONATATE [Concomitant]
     Dates: start: 20030908
  8. MEPERIDINE HCL [Concomitant]
     Dates: start: 20030909
  9. CELEBREX [Concomitant]
     Dates: start: 20030909
  10. HYDROCHLOROTHIAZIDE [Concomitant]
     Dosage: 37.5-25
     Dates: start: 20030909
  11. LOVASTATIN [Concomitant]
     Dates: start: 20030920
  12. LORAZEPAM [Concomitant]
     Dates: start: 20030920
  13. CARISOPRODOL [Concomitant]
     Dates: start: 20030922
  14. LIPITOR [Concomitant]
     Dates: start: 20030928
  15. NIFEDIAC CC ER [Concomitant]
     Dates: start: 20030928
  16. ZONAFLEX [Concomitant]

REACTIONS (4)
  - BLOOD TRIGLYCERIDES INCREASED [None]
  - DIABETES MELLITUS [None]
  - DIABETES MELLITUS INADEQUATE CONTROL [None]
  - PANCREATITIS [None]
